FAERS Safety Report 12203655 (Version 1)
Quarter: 2016Q1

REPORT INFORMATION
  Report Type: Spontaneous
  Country: US (occurrence: None)
  Receive Date: 20160322
  Receipt Date: 20160322
  Transmission Date: 20160526
  Serious: No
  Sender: FDA-Public Use
  Company Number: None

PATIENT
  Age: 38 Year
  Sex: Male
  Weight: 104.33 kg

DRUGS (1)
  1. HYDROCODONE /ACETAMINOPHEN 5/325MG WATSON [Suspect]
     Active Substance: ACETAMINOPHEN\HYDROCODONE
     Indication: PAIN
     Route: 048
     Dates: start: 20160317, end: 20160321

REACTIONS (2)
  - Feeling hot [None]
  - Skin discolouration [None]

NARRATIVE: CASE EVENT DATE: 20160321
